FAERS Safety Report 5785971-3 (Version None)
Quarter: 2008Q2

REPORT INFORMATION
  Report Type: 
  Country: None (occurrence: None)
  Receive Date: 20080624
  Receipt Date: 20080616
  Transmission Date: 20081010
  Serious: Yes (Other)
  Sender: FDA-Public Use
  Company Number: PHHY2008JP09671

PATIENT
  Sex: Male
  Weight: 53 kg

DRUGS (13)
  1. ZOMETA [Suspect]
     Indication: BONE LESION
     Dosage: 4 MG/DAY
     Route: 042
     Dates: start: 20070111, end: 20080307
  2. DECADRON [Concomitant]
     Dosage: 2 MG, UNK
     Route: 048
     Dates: start: 20061101
  3. ITRIZOLE [Concomitant]
     Dosage: 100 MG, UNK
     Route: 048
     Dates: start: 20060101
  4. RABEPRAZOLE SODIUM [Concomitant]
     Route: 048
  5. BAKTAR [Concomitant]
     Dosage: 1 DF, UNK
     Route: 048
     Dates: start: 20060101
  6. ALOSITOL [Concomitant]
     Dosage: 100 MG, UNK
     Route: 048
     Dates: start: 20060101
  7. AZUCURENIN S [Concomitant]
     Dosage: 2 G, UNK
     Route: 048
     Dates: start: 20060101
  8. MAGNESIUM OXIDE [Concomitant]
     Dosage: 2 G, UNK
     Route: 048
     Dates: start: 20060101
  9. CALCIUM POLYSTYRENE SULFONATE [Concomitant]
     Dosage: 4 DF, UNK
     Route: 048
     Dates: start: 20060101
  10. LANSOPRAZOLE [Concomitant]
     Dosage: 15 MG, UNK
     Route: 048
     Dates: start: 20060101
  11. GLYSENNID [Concomitant]
     Dosage: 12 MG, UNK
     Route: 048
     Dates: start: 20060101
  12. ENDOXAN [Concomitant]
     Dosage: 100 MG, UNK
     Route: 048
     Dates: start: 20070301
  13. DEXAMETHASONE W/DOXORUBICIN/VINCRISTINE [Concomitant]
     Indication: MULTIPLE MYELOMA
     Dosage: UNK
     Dates: start: 20080504

REACTIONS (3)
  - GINGIVAL DISORDER [None]
  - JAW DISORDER [None]
  - OSTEONECROSIS [None]
